FAERS Safety Report 17619032 (Version 4)
Quarter: 2020Q2

REPORT INFORMATION
  Report Type: Spontaneous
  Country: US (occurrence: US)
  Receive Date: 20200402
  Receipt Date: 20200528
  Transmission Date: 20200713
  Serious: No
  Sender: FDA-Public Use
  Company Number: US-ACTELION-A-NJ2020-203681

PATIENT
  Sex: Female
  Weight: 111.11 kg

DRUGS (1)
  1. OPSUMIT [Suspect]
     Active Substance: MACITENTAN
     Indication: PRODUCT USED FOR UNKNOWN INDICATION
     Dosage: 10 MG, QD
     Route: 048
     Dates: start: 20200220, end: 2020

REACTIONS (9)
  - Gait disturbance [Not Recovered/Not Resolved]
  - Chromaturia [Unknown]
  - Pruritus [Unknown]
  - Drug hypersensitivity [Unknown]
  - Pyrexia [Unknown]
  - Dyspnoea [Unknown]
  - Weight increased [Unknown]
  - Malaise [Unknown]
  - Headache [Unknown]

NARRATIVE: CASE EVENT DATE: 2020
